FAERS Safety Report 7270746-9 (Version None)
Quarter: 2011Q1

REPORT INFORMATION
  Report Type: 
  Country: None (occurrence: None)
  Receive Date: 20110202
  Receipt Date: 20110128
  Transmission Date: 20110831
  Serious: Yes (Hospitalization)
  Sender: FDA-Public Use
  Company Number: MX-B.I. PHARMACEUTICALS,INC./RIDGEFIELD-2011-MX-00017MX

PATIENT

DRUGS (1)
  1. DABIGATRAN [Suspect]

REACTIONS (1)
  - HOSPITALISATION [None]
